FAERS Safety Report 19288134 (Version 1)
Quarter: 2021Q2

REPORT INFORMATION
  Report Type: Spontaneous
  Country: US (occurrence: US)
  Receive Date: 20210521
  Receipt Date: 20210521
  Transmission Date: 20210717
  Serious: Yes (Other)
  Sender: FDA-Public Use
  Company Number: US-ELI_LILLY_AND_COMPANY-US202105005542

PATIENT
  Sex: Male

DRUGS (1)
  1. BASAGLAR [Suspect]
     Active Substance: INSULIN GLARGINE
     Indication: DIABETES MELLITUS
     Dosage: UNK UNK, UNKNOWN
     Route: 065

REACTIONS (8)
  - Feeling abnormal [Unknown]
  - COVID-19 [Unknown]
  - Gait disturbance [Not Recovered/Not Resolved]
  - Cerebrovascular accident [Unknown]
  - Impaired self-care [Unknown]
  - Memory impairment [Not Recovered/Not Resolved]
  - Cataract [Unknown]
  - Dysgraphia [Not Recovered/Not Resolved]

NARRATIVE: CASE EVENT DATE: 2020
